FAERS Safety Report 10936264 (Version 1)
Quarter: 2015Q1

REPORT INFORMATION
  Report Type: Spontaneous
  Country: US (occurrence: None)
  Receive Date: 20150320
  Receipt Date: 20150320
  Transmission Date: 20150721
  Serious: Yes (Other)
  Sender: FDA-Public Use
  Company Number: None

PATIENT
  Age: 64 Year
  Sex: Female
  Weight: 77.11 kg

DRUGS (13)
  1. MULTIVITAMIN [Concomitant]
     Active Substance: VITAMINS
  2. VITAMIN D [Concomitant]
     Active Substance: CHOLECALCIFEROL
  3. ABILIFY [Concomitant]
     Active Substance: ARIPIPRAZOLE
  4. POTASSIUM CITRATE. [Concomitant]
     Active Substance: POTASSIUM CITRATE
  5. COLACE [Concomitant]
     Active Substance: DOCUSATE SODIUM
  6. BIOTIN [Concomitant]
     Active Substance: BIOTIN
  7. WELLBUTRIN [Concomitant]
     Active Substance: BUPROPION HYDROCHLORIDE
  8. BRINTELLIX [Suspect]
     Active Substance: VORTIOXETINE HYDROBROMIDE
     Indication: MAJOR DEPRESSION
     Dosage: TAKEN BY MOUTH
     Dates: start: 20150211, end: 20150310
  9. PEPCID [Concomitant]
     Active Substance: FAMOTIDINE
  10. CYMBALTA [Concomitant]
     Active Substance: DULOXETINE HYDROCHLORIDE
  11. HYDROCHLOROTHIAZIDE. [Concomitant]
     Active Substance: HYDROCHLOROTHIAZIDE
  12. SENNA [Concomitant]
     Active Substance: SENNA LEAF\SENNOSIDES\SENNOSIDES A AND B
  13. RITALIN [Concomitant]
     Active Substance: METHYLPHENIDATE HYDROCHLORIDE

REACTIONS (5)
  - Depression [None]
  - Emotional distress [None]
  - Suicidal ideation [None]
  - Self injurious behaviour [None]
  - Irritability [None]

NARRATIVE: CASE EVENT DATE: 20150218
